FAERS Safety Report 16053180 (Version 2)
Quarter: 2019Q2

REPORT INFORMATION
  Report Type: Spontaneous
  Country: US (occurrence: US)
  Receive Date: 20190308
  Receipt Date: 20190416
  Transmission Date: 20190711
  Serious: No
  Sender: FDA-Public Use
  Company Number: US-ASTRAZENECA-2019SE24220

PATIENT
  Age: 23041 Day
  Sex: Female
  Weight: 104.3 kg

DRUGS (1)
  1. BEVESPI AEROSPHERE [Suspect]
     Active Substance: FORMOTEROL FUMARATE\GLYCOPYRROLATE
     Dosage: 9MCG/4.8MCG, 1 OR 2 PUFFS TWICE DAILY
     Route: 055
     Dates: start: 2018

REACTIONS (11)
  - Thyroid disorder [Unknown]
  - Intentional device misuse [Unknown]
  - Off label use [Unknown]
  - Arthralgia [Unknown]
  - Weight increased [Unknown]
  - Meniscus injury [Unknown]
  - Arthritis [Unknown]
  - Device issue [Unknown]
  - Circumstance or information capable of leading to medication error [Unknown]
  - Dyspnoea [Unknown]
  - Gait disturbance [Unknown]

NARRATIVE: CASE EVENT DATE: 201806
